FAERS Safety Report 8919164 (Version 1)
Quarter: 2012Q4

REPORT INFORMATION
  Report Type: Spontaneous
  Country: IN (occurrence: None)
  Receive Date: 20121114
  Receipt Date: 20121114
  Transmission Date: 20130627
  Serious: Yes (Hospitalization)
  Sender: FDA-Public Use
  Company Number: FK201203298

PATIENT
  Age: 32 Year
  Sex: Female

DRUGS (1)
  1. LEVOTHYROXINE SODIUM [Suspect]
     Indication: WEIGHT DECREASED
     Dosage: 100 �g, oral
     Route: 048

REACTIONS (3)
  - Thyrotoxic periodic paralysis [None]
  - Hypokalaemia [None]
  - Blood creatine phosphokinase increased [None]
